FAERS Safety Report 20856088 (Version 1)
Quarter: 2022Q2

REPORT INFORMATION
  Report Type: Spontaneous
  Country: US (occurrence: US)
  Receive Date: 20220520
  Receipt Date: 20220520
  Transmission Date: 20220720
  Serious: No
  Sender: FDA-Public Use
  Company Number: US-BIOMARINAP-US-2022-143091

PATIENT
  Age: 8 Year
  Sex: Female
  Weight: 18.639 kg

DRUGS (5)
  1. BRINEURA [Suspect]
     Active Substance: CERLIPONASE ALFA
     Indication: Neuronal ceroid lipofuscinosis
     Dosage: 10 MILLILITER, QOW
     Route: 020
  2. KEPPRA [Concomitant]
     Active Substance: LEVETIRACETAM
     Indication: Seizure
  3. ONFI [Concomitant]
     Active Substance: CLOBAZAM
     Indication: Seizure
  4. BACLOFEN [Concomitant]
     Active Substance: BACLOFEN
     Indication: Seizure
  5. ZONISAMIDE [Concomitant]
     Active Substance: ZONISAMIDE
     Indication: Seizure

REACTIONS (5)
  - Catheter site swelling [Unknown]
  - Device leakage [Unknown]
  - Needle issue [Unknown]
  - Incorrect dose administered [Unknown]
  - Off label use [Unknown]

NARRATIVE: CASE EVENT DATE: 20220504
